FAERS Safety Report 13555562 (Version 1)
Quarter: 2017Q2

REPORT INFORMATION
  Report Type: Spontaneous
  Country: US (occurrence: US)
  Receive Date: 20170517
  Receipt Date: 20170517
  Transmission Date: 20170830
  Serious: No
  Sender: FDA-Public Use
  Company Number: US-MYLANLABS-2016M1047374

PATIENT
  Sex: Female

DRUGS (1)
  1. CLOBETASOL [Suspect]
     Active Substance: CLOBETASOL
     Indication: PSORIASIS
     Dosage: (2) 100-GRAM CANISTERS, UNK
     Route: 061

REACTIONS (3)
  - Application site pain [Recovered/Resolved]
  - Product container issue [Not Recovered/Not Resolved]
  - Product substitution issue [Not Recovered/Not Resolved]
